FAERS Safety Report 7328560-1 (Version None)
Quarter: 2011Q1

REPORT INFORMATION
  Report Type: 
  Country: None (occurrence: None)
  Receive Date: 20110303
  Receipt Date: 20100923
  Transmission Date: 20110831
  Serious: Yes (Death, Hospitalization)
  Sender: FDA-Public Use
  Company Number: US-BAYER-2011-016206

PATIENT
  Sex: Male

DRUGS (18)
  1. CONTRAST MEDIA [Concomitant]
     Indication: CATHETERISATION CARDIAC
     Dosage: UNK
     Dates: start: 20040223
  2. PLAVIX [Concomitant]
  3. HEPARIN [Concomitant]
     Dosage: 43.000 U, UNK
     Route: 042
     Dates: start: 20040224, end: 20040224
  4. TRASYLOL [Suspect]
     Indication: CORONARY ARTERY BYPASS
     Dosage: UNK
     Route: 042
     Dates: start: 20040224, end: 20040224
  5. LIDOCAINE [Concomitant]
     Dosage: 100 MG, UNK
     Route: 042
     Dates: start: 20040224, end: 20040224
  6. ASPIRIN [Concomitant]
  7. AMIODARONE [Concomitant]
     Dosage: UNK
     Route: 042
     Dates: start: 20040224
  8. SODIUM BICARBONATE [Concomitant]
     Dosage: 25 MEQ, UNK
     Route: 042
     Dates: start: 20040224, end: 20040224
  9. TEQUIN [Concomitant]
     Indication: URINARY TRACT INFECTION
  10. APROTININ [Concomitant]
     Dosage: 2.000 K/U
     Route: 042
     Dates: start: 20040224, end: 20040224
  11. PLASMALYTE [GLUCOSE,POTASSIUM CHLORIDE] [Concomitant]
     Dosage: 800 ML, UNK
     Route: 042
     Dates: start: 20040224, end: 20040224
  12. ALBUMIN (HUMAN) [Concomitant]
     Dosage: 25 G, UNK
     Route: 042
     Dates: start: 20040224, end: 20040224
  13. MANNITOL [Concomitant]
     Dosage: 37.5 G, UNK
     Route: 042
     Dates: start: 20040224, end: 20040224
  14. MAGNESIUM SULFATE [Concomitant]
     Dosage: 2 G, UNK
     Route: 042
     Dates: start: 20040224, end: 20040224
  15. LISINOPRIL [Concomitant]
  16. NAPROSYN [Concomitant]
  17. BUMEX [Concomitant]
     Dosage: UNK
     Route: 041
     Dates: start: 20040226, end: 20040228
  18. METOPROLOL [Concomitant]

REACTIONS (7)
  - RENAL FAILURE ACUTE [None]
  - RENAL TUBULAR NECROSIS [None]
  - RENAL FAILURE [None]
  - OLIGURIA [None]
  - AZOTAEMIA [None]
  - DEATH [None]
  - RENAL IMPAIRMENT [None]
